FAERS Safety Report 17363483 (Version 1)
Quarter: 2020Q1

REPORT INFORMATION
  Report Type: Spontaneous
  Country: US (occurrence: US)
  Receive Date: 20200203
  Receipt Date: 20200203
  Transmission Date: 20200409
  Serious: No
  Sender: FDA-Public Use
  Company Number: US-JUBILANT CADISTA PHARMACEUTICALS-2019JUB00407

PATIENT
  Sex: Female
  Weight: 52.15 kg

DRUGS (5)
  1. TERAZOSIN [Suspect]
     Active Substance: TERAZOSIN HYDROCHLORIDE
     Indication: HYPERTENSION
     Dosage: 2 MG, 1X/DAY
  2. VITAMIN D [Concomitant]
     Active Substance: VITAMIN D NOS
  3. TERAZOSIN [Suspect]
     Active Substance: TERAZOSIN HYDROCHLORIDE
     Indication: HYPERTENSION
     Dosage: UNK
     Dates: end: 2018
  4. VITAMIN E [Concomitant]
     Active Substance: .ALPHA.-TOCOPHEROL
  5. TERAZOSIN [Suspect]
     Active Substance: TERAZOSIN HYDROCHLORIDE
     Dosage: 2 MG, 2X/DAY
     Route: 048
     Dates: start: 2018

REACTIONS (14)
  - Increased upper airway secretion [Recovered/Resolved]
  - Increased bronchial secretion [Recovered/Resolved]
  - Weight decreased [Recovering/Resolving]
  - Hypertension [Unknown]
  - Cough [Not Recovered/Not Resolved]
  - Malabsorption [Recovering/Resolving]
  - Dysphagia [Unknown]
  - Chest pain [Unknown]
  - Choking sensation [Unknown]
  - Eructation [Recovering/Resolving]
  - Flatulence [Recovering/Resolving]
  - Gastric pH decreased [Recovering/Resolving]
  - Productive cough [Recovered/Resolved]
  - Drug ineffective [Not Recovered/Not Resolved]

NARRATIVE: CASE EVENT DATE: 2017
